FAERS Safety Report 9540734 (Version 1)
Quarter: 2013Q3

REPORT INFORMATION
  Report Type: Spontaneous
  Country: US (occurrence: US)
  Receive Date: 20130920
  Receipt Date: 20130920
  Transmission Date: 20140515
  Serious: No
  Sender: FDA-Public Use
  Company Number: US-PFIZER INC-2013270469

PATIENT
  Age: 77 Year
  Sex: Male
  Weight: 77.1 kg

DRUGS (5)
  1. LYRICA [Suspect]
     Indication: DIABETIC NEUROPATHY
     Dosage: 300 MG (DIVIDING CONTENT INTO 4 PARTS), UNK
     Dates: start: 201308
  2. LYRICA [Suspect]
     Dosage: 100 MG, 4X/DAY
     Route: 048
     Dates: start: 201301
  3. HYZAAR [Concomitant]
     Indication: HYPERTENSION
     Dosage: 100/25 MG, UNK
  4. METFORMIN [Concomitant]
     Indication: DIABETES MELLITUS
     Dosage: 2000 MG, 1X/DAY
  5. METHADONE [Concomitant]
     Indication: PAIN
     Dosage: 20 MG, UNK

REACTIONS (2)
  - Off label use [Unknown]
  - Intentional drug misuse [Unknown]
